FAERS Safety Report 19379692 (Version 3)
Quarter: 2021Q3

REPORT INFORMATION
  Report Type: Report from Study
  Country: IE (occurrence: IE)
  Receive Date: 20210607
  Receipt Date: 20210929
  Transmission Date: 20211014
  Serious: Yes (Hospitalization)
  Sender: FDA-Public Use
  Company Number: IE-JNJFOC-20210608842

PATIENT
  Age: 67 Year
  Sex: Male

DRUGS (13)
  1. ASPRIN [Concomitant]
     Active Substance: ASPIRIN
  2. FINASTERIDE. [Concomitant]
     Active Substance: FINASTERIDE
  3. ESOMEPRAZOLE. [Concomitant]
     Active Substance: ESOMEPRAZOLE MAGNESIUM
  4. FERROUS FUMARATE [Concomitant]
     Active Substance: FERROUS FUMARATE
  5. STELARA [Suspect]
     Active Substance: USTEKINUMAB
     Indication: CROHN^S DISEASE
     Route: 058
     Dates: start: 20200601
  6. ATORVASTATIN [Concomitant]
     Active Substance: ATORVASTATIN
  7. BISOPROLOL [Concomitant]
     Active Substance: BISOPROLOL
  8. AMITRIPTYLINE [Concomitant]
     Active Substance: AMITRIPTYLINE
  9. OXYCODONE [Concomitant]
     Active Substance: OXYCODONE
  10. OXYCONTIN [Concomitant]
     Active Substance: OXYCODONE HYDROCHLORIDE
  11. LYRICA [Concomitant]
     Active Substance: PREGABALIN
  12. NORTEM [Concomitant]
     Active Substance: TEMAZEPAM
  13. DESUNIN [Concomitant]
     Active Substance: CHOLECALCIFEROL
     Dosage: 800 UNITS

REACTIONS (2)
  - Peripheral swelling [Not Recovered/Not Resolved]
  - Enterostomy closure [Not Recovered/Not Resolved]

NARRATIVE: CASE EVENT DATE: 20210524
